FAERS Safety Report 24080946 (Version 1)
Quarter: 2024Q3

REPORT INFORMATION
  Report Type: Spontaneous
  Country: US (occurrence: US)
  Receive Date: 20240711
  Receipt Date: 20240711
  Transmission Date: 20241017
  Serious: No
  Sender: UROGEN PHARMA
  Company Number: US-UROGEN PHARMA LTD.-2024-UGN-000066

PATIENT

DRUGS (2)
  1. JELMYTO [Suspect]
     Active Substance: MITOMYCIN
     Indication: Renal cancer
     Dosage: 15 MILLILITER INSTILLATION
     Dates: start: 20240514, end: 20240514
  2. JELMYTO [Suspect]
     Active Substance: MITOMYCIN
     Dosage: 12 MILLILITER INSTILLATION
     Dates: start: 20240528, end: 20240528

REACTIONS (3)
  - Renal pain [Recovered/Resolved]
  - Pyrexia [Unknown]
  - Fatigue [Unknown]

NARRATIVE: CASE EVENT DATE: 20240514
